FAERS Safety Report 14347477 (Version 1)
Quarter: 2018Q1

REPORT INFORMATION
  Report Type: Spontaneous
  Country: US (occurrence: US)
  Receive Date: 20180103
  Receipt Date: 20180103
  Transmission Date: 20180509
  Serious: Yes (Other)
  Sender: FDA-Public Use
  Company Number: US-BAYER-2017-248487

PATIENT
  Sex: Female
  Weight: 122 kg

DRUGS (3)
  1. BAYER ASPIRIN [Suspect]
     Active Substance: ASPIRIN
     Indication: CEREBROVASCULAR ACCIDENT PROPHYLAXIS
     Dosage: 325 MG, QD; REGIMEN WAS STARTED ON PATIEN^S OWN AUTHORITY;
     Route: 048
     Dates: start: 2016
  2. BAYER LOW DOSE [Suspect]
     Active Substance: ASPIRIN
     Indication: CARDIOVASCULAR EVENT PROPHYLAXIS
     Dosage: 81 MG, QD; REGIMEN WAS STARTED ON PATIEN^S OWN AUTHORITY;
     Route: 048
     Dates: start: 1997, end: 2012
  3. INSULIN [Concomitant]
     Active Substance: INSULIN NOS

REACTIONS (4)
  - Intentional product misuse [Unknown]
  - Incorrect dosage administered [Unknown]
  - Cerebrovascular accident [Recovered/Resolved]
  - Product use in unapproved indication [Unknown]

NARRATIVE: CASE EVENT DATE: 1997
